FAERS Safety Report 10247686 (Version 2)
Quarter: 2014Q2

REPORT INFORMATION
  Report Type: Spontaneous
  Country: US (occurrence: US)
  Receive Date: 20140619
  Receipt Date: 20140619
  Transmission Date: 20141212
  Serious: Yes (Other)
  Sender: FDA-Public Use
  Company Number: US-PFIZER INC-2014124384

PATIENT
  Age: 29 Year
  Sex: Female

DRUGS (3)
  1. BOSULIF [Suspect]
     Indication: CHRONIC MYELOID LEUKAEMIA
     Dosage: 500 MG, 1X/DAY (ONE MONTH 6 TABLETS ONLY)
     Route: 048
     Dates: start: 20131120, end: 20131217
  2. INCLUSIG [Concomitant]
     Dosage: 15 MG, UNK
     Dates: start: 20130611, end: 20131031
  3. INCLUSIG [Concomitant]
     Dosage: UNK

REACTIONS (2)
  - Pulmonary hypertension [Unknown]
  - Cardiomegaly [Unknown]
